FAERS Safety Report 8469397-X (Version None)
Quarter: 2012Q2

REPORT INFORMATION
  Report Type: 
  Country: None (occurrence: None)
  Receive Date: 20120626
  Receipt Date: 20120619
  Transmission Date: 20120825
  Serious: Yes (Other)
  Sender: FDA-Public Use
  Company Number: US-GILEAD-2012-0056882

PATIENT
  Sex: Male

DRUGS (1)
  1. AZTREONAM [Suspect]
     Indication: CYSTIC FIBROSIS
     Route: 055

REACTIONS (1)
  - HAEMOPTYSIS [None]
